FAERS Safety Report 9289291 (Version 1)
Quarter: 2013Q2

REPORT INFORMATION
  Report Type: Spontaneous
  Country: US (occurrence: US)
  Receive Date: 20130514
  Receipt Date: 20130514
  Transmission Date: 20140414
  Serious: No
  Sender: FDA-Public Use
  Company Number: US-OPTIMER PHARMACEUTICALS, INC.-20120037

PATIENT
  Age: 44 Year
  Sex: Female
  Weight: 115.19 kg

DRUGS (7)
  1. DIFICID [Suspect]
     Indication: CLOSTRIDIAL INFECTION
     Dosage: 200 MG, BID
     Route: 048
     Dates: start: 20120228, end: 20120308
  2. DIFICID [Suspect]
     Dosage: 200 MG, BID
     Route: 048
     Dates: start: 20120320
  3. VANCOMYCIN [Concomitant]
     Indication: CLOSTRIDIAL INFECTION
     Dosage: UNK
     Dates: end: 20120223
  4. SEROQUEL [Concomitant]
     Indication: BIPOLAR DISORDER
     Dosage: 200 MG, QD
     Route: 048
  5. SERTRALINE [Concomitant]
     Indication: BIPOLAR DISORDER
     Dosage: 50 MG, QD
     Route: 048
  6. NABUMETONE [Concomitant]
     Indication: BIPOLAR DISORDER
     Dosage: 500 MG, BID
     Route: 048
  7. OLANZAPINE [Concomitant]
     Indication: BIPOLAR DISORDER
     Dosage: 15 MG, BID
     Route: 048

REACTIONS (6)
  - Clostridium difficile infection [Unknown]
  - Disease recurrence [Unknown]
  - Abdominal distension [Unknown]
  - Abdominal pain [Unknown]
  - Abnormal faeces [Unknown]
  - Frequent bowel movements [Unknown]
